FAERS Safety Report 9949753 (Version 1)
Quarter: 2014Q1

REPORT INFORMATION
  Report Type: Report from Study
  Country: US (occurrence: US)
  Receive Date: 20140304
  Receipt Date: 20140304
  Transmission Date: 20141002
  Serious: No
  Sender: FDA-Public Use
  Company Number: US-ABBVIE-13P-163-1068097-00

PATIENT
  Sex: Female
  Weight: 99.88 kg

DRUGS (53)
  1. HUMIRA [Suspect]
     Indication: OSTEOARTHRITIS
     Route: 058
     Dates: start: 20130308
  2. HUMIRA [Suspect]
     Indication: FIBROMYALGIA
  3. HUMIRA [Suspect]
     Indication: RHEUMATOID ARTHRITIS
  4. HUMIRA [Suspect]
     Indication: COLITIS ULCERATIVE
  5. FLECTOR [Concomitant]
     Indication: PRODUCT USED FOR UNKNOWN INDICATION
     Route: 062
  6. GLUCOPHAGE [Concomitant]
     Indication: PRODUCT USED FOR UNKNOWN INDICATION
  7. LIDODERM [Concomitant]
     Indication: PRODUCT USED FOR UNKNOWN INDICATION
     Dosage: 1 TO 2 PATCHES ON FOR 12 HOURS THEN OFF FOR 12 HOURS, AS NEEDED
  8. VICODIN [Concomitant]
     Indication: PRODUCT USED FOR UNKNOWN INDICATION
     Dosage: 7.5/750MG, 1 DAILY, AS NEEDED
  9. ULTRACET [Concomitant]
     Indication: PRODUCT USED FOR UNKNOWN INDICATION
     Dosage: 37.5/325MG, 2 TABLETS, EVERY 6 HOURS
  10. PLAQUENIL [Concomitant]
     Indication: PRODUCT USED FOR UNKNOWN INDICATION
     Dosage: 2 PILLS DAILY
  11. FLEXERIL [Concomitant]
     Indication: PRODUCT USED FOR UNKNOWN INDICATION
     Dosage: AT BEDTIME, AS NEEDED
  12. PROTONIX [Concomitant]
     Indication: PRODUCT USED FOR UNKNOWN INDICATION
     Dosage: EVERY MORNING
  13. GLIPIZIDE [Concomitant]
     Indication: PRODUCT USED FOR UNKNOWN INDICATION
     Dosage: IN THE MORNING AND EVENING
  14. ASPIRIN [Concomitant]
     Indication: PRODUCT USED FOR UNKNOWN INDICATION
  15. XANAX [Concomitant]
     Indication: PRODUCT USED FOR UNKNOWN INDICATION
  16. LORCET [Concomitant]
     Indication: PRODUCT USED FOR UNKNOWN INDICATION
     Dosage: 10/650MG, 3 TIMES DAILY, AS NEEDED
  17. LORCET PLUS [Concomitant]
     Indication: PRODUCT USED FOR UNKNOWN INDICATION
     Dosage: 7.5/650MG, 3 TIMES DIALY, AS NEEDED
  18. CALCIUM CARBONATE W/VITAMIN D NOS [Concomitant]
     Indication: PRODUCT USED FOR UNKNOWN INDICATION
  19. POTASSIUM [Concomitant]
     Indication: PRODUCT USED FOR UNKNOWN INDICATION
  20. LOMOTIL [Concomitant]
     Indication: PRODUCT USED FOR UNKNOWN INDICATION
  21. PREDNISONE [Concomitant]
     Indication: PRODUCT USED FOR UNKNOWN INDICATION
     Dosage: 1 IN 1 DAY
  22. HYDROCODONE [Concomitant]
     Indication: PRODUCT USED FOR UNKNOWN INDICATION
     Dosage: 7.5/500MG, 3 TIMES DAILY
  23. METHOTREXATE [Concomitant]
     Indication: PRODUCT USED FOR UNKNOWN INDICATION
     Dosage: 3 TABLETS WEEKLY
  24. MAGNESIUM [Concomitant]
     Indication: PRODUCT USED FOR UNKNOWN INDICATION
  25. CLARITIN [Concomitant]
     Indication: PRODUCT USED FOR UNKNOWN INDICATION
     Dosage: EVERY DAY ALTERNATED WITH ZYRTEC
  26. ZYRTEC [Concomitant]
     Indication: PRODUCT USED FOR UNKNOWN INDICATION
     Dosage: ALTERNATED WITH CLARITIN
  27. LEVOTHYROXINE [Concomitant]
     Indication: PRODUCT USED FOR UNKNOWN INDICATION
  28. WELLBUTRIN [Concomitant]
     Indication: PRODUCT USED FOR UNKNOWN INDICATION
     Dosage: 300MG IN THE MORNING, 150MG IN THE EVENING
  29. FOLIC [Concomitant]
     Indication: PRODUCT USED FOR UNKNOWN INDICATION
  30. ULTRAM [Concomitant]
     Indication: PRODUCT USED FOR UNKNOWN INDICATION
     Dosage: 1 TO 2 TABLETS, 4 TIMES DAILY, AS NEEDED
  31. DETROL LA [Concomitant]
     Indication: PRODUCT USED FOR UNKNOWN INDICATION
  32. MULTIVITAMIN WITH B12 [Concomitant]
     Indication: PRODUCT USED FOR UNKNOWN INDICATION
     Dosage: DAILY
  33. IMITREX [Concomitant]
     Indication: PRODUCT USED FOR UNKNOWN INDICATION
  34. COLAZAL [Concomitant]
     Indication: PRODUCT USED FOR UNKNOWN INDICATION
  35. HUMULINA REGULAR [Concomitant]
     Indication: PRODUCT USED FOR UNKNOWN INDICATION
     Dosage: PER SLIDING SCALE
  36. REGLAN [Concomitant]
     Indication: PRODUCT USED FOR UNKNOWN INDICATION
  37. DARVOCET [Concomitant]
     Indication: PRODUCT USED FOR UNKNOWN INDICATION
  38. LASIX-K [Concomitant]
     Indication: PRODUCT USED FOR UNKNOWN INDICATION
  39. FISH OIL [Concomitant]
     Indication: PRODUCT USED FOR UNKNOWN INDICATION
     Dosage: 2 TABLETS DAILY
  40. ZOCOR [Concomitant]
     Indication: PRODUCT USED FOR UNKNOWN INDICATION
  41. CORTISPORIN OINTMENT [Concomitant]
     Indication: PRODUCT USED FOR UNKNOWN INDICATION
  42. SEVILLA [Concomitant]
     Indication: PRODUCT USED FOR UNKNOWN INDICATION
     Dosage: NIGHTLY
  43. LYRICA [Concomitant]
     Indication: PRODUCT USED FOR UNKNOWN INDICATION
     Dosage: AT BEDTIME
  44. CELEBREX [Concomitant]
     Indication: PRODUCT USED FOR UNKNOWN INDICATION
  45. ZANTAC [Concomitant]
     Indication: PRODUCT USED FOR UNKNOWN INDICATION
     Dosage: 2 IN 1 DAY
  46. LIBRAX [Concomitant]
     Indication: PRODUCT USED FOR UNKNOWN INDICATION
  47. VOLTAREN EMULGEL [Concomitant]
     Indication: PRODUCT USED FOR UNKNOWN INDICATION
  48. JANUVIA [Concomitant]
     Indication: PRODUCT USED FOR UNKNOWN INDICATION
  49. PHENERGAN [Concomitant]
     Indication: PRODUCT USED FOR UNKNOWN INDICATION
     Dosage: EVERY 6 TO 8 HOURS, AS NEEDED
  50. LISINOPRIL [Concomitant]
     Indication: PRODUCT USED FOR UNKNOWN INDICATION
  51. SINGULAIR [Concomitant]
     Indication: PRODUCT USED FOR UNKNOWN INDICATION
  52. ROBAXIN [Concomitant]
     Indication: PRODUCT USED FOR UNKNOWN INDICATION
  53. LANTUS [Concomitant]
     Indication: PRODUCT USED FOR UNKNOWN INDICATION
     Dosage: AT BEDTIME

REACTIONS (3)
  - Off label use [Unknown]
  - Device malfunction [Unknown]
  - Drug dose omission [Unknown]
